FAERS Safety Report 8880456 (Version 1)
Quarter: 2012Q4

REPORT INFORMATION
  Report Type: 
  Country: US (occurrence: US)
  Receive Date: 20121031
  Receipt Date: 20121031
  Transmission Date: 20130627
  Serious: Yes (Death, Other)
  Sender: FDA-Public Use
  Company Number: PHHY2012US097746

PATIENT

DRUGS (2)
  1. ASCRIPTIN BUFFERED REG STRENGTH TABLETS [Suspect]
     Indication: ARTHRITIS
     Dates: start: 1975
  2. RADIATION [Concomitant]

REACTIONS (3)
  - Pancreatic carcinoma [Fatal]
  - Diabetes mellitus [Fatal]
  - Jaundice [Recovered/Resolved]
